APPROVED DRUG PRODUCT: FLUVOXAMINE MALEATE
Active Ingredient: FLUVOXAMINE MALEATE
Strength: 50MG
Dosage Form/Route: TABLET;ORAL
Application: A075950 | Product #001
Applicant: MYLAN PHARMACEUTICALS INC
Approved: Oct 15, 2001 | RLD: No | RS: No | Type: DISCN